FAERS Safety Report 18925784 (Version 1)
Quarter: 2021Q1

REPORT INFORMATION
  Report Type: Spontaneous
  Country: NO (occurrence: NO)
  Receive Date: 20210223
  Receipt Date: 20210223
  Transmission Date: 20210420
  Serious: Yes (Hospitalization)
  Sender: FDA-Public Use
  Company Number: NO-TEVA-2021-NO-1881721

PATIENT
  Age: 68 Year
  Sex: Male
  Weight: 73 kg

DRUGS (3)
  1. GEMCITABINE. [Suspect]
     Active Substance: GEMCITABINE
     Indication: CHEMOTHERAPY
  2. GEMCITABINE. [Suspect]
     Active Substance: GEMCITABINE
     Indication: PANCREATIC CARCINOMA
     Dosage: 75% OF FULL DOSE (CYTOSTATICS) , UNIT DOSE : 75 P ERCENT
     Dates: start: 20210121
  3. CREON 25000 ENTEROKAPS 25000 E/18000 E/1000 E [Concomitant]
     Indication: DYSPEPSIA
     Dosage: 3 X DAILY
     Dates: start: 202012

REACTIONS (5)
  - Headache [Unknown]
  - Pyrexia [Recovered/Resolved]
  - Rash [Unknown]
  - Asthenia [Unknown]
  - Urticaria [Recovering/Resolving]

NARRATIVE: CASE EVENT DATE: 20210128
